FAERS Safety Report 9130315 (Version 3)
Quarter: 2013Q3

REPORT INFORMATION
  Report Type: Spontaneous
  Country: FR (occurrence: FR)
  Receive Date: 20130228
  Receipt Date: 20130910
  Transmission Date: 20140515
  Serious: Yes (Hospitalization)
  Sender: FDA-Public Use
  Company Number: FR-MERCK-1302FRA009240

PATIENT
  Age: 55 Year
  Sex: Male

DRUGS (9)
  1. NOXAFIL [Suspect]
     Indication: PROPHYLAXIS
     Dosage: UNK
     Route: 048
     Dates: start: 20110713, end: 20110812
  2. LEDERFOLINE [Suspect]
     Indication: PRODUCT USED FOR UNKNOWN INDICATION
     Dosage: UNK
     Route: 048
     Dates: start: 20110713, end: 20110812
  3. ORACILLINE (PENICILLIN V) [Suspect]
     Indication: APLASIA
     Dosage: UNK
     Route: 048
     Dates: start: 20110713, end: 20110812
  4. ZELITREX [Suspect]
     Indication: APLASIA
     Dosage: UNK
     Route: 048
     Dates: start: 20110713, end: 20110812
  5. BACTRIM [Suspect]
     Indication: APLASIA
     Dosage: UNK
     Route: 048
     Dates: start: 20110713, end: 20110812
  6. RAMIPRIL [Concomitant]
     Indication: PRODUCT USED FOR UNKNOWN INDICATION
     Dosage: UNK
     Dates: end: 20110713
  7. FENOFIBRATE [Concomitant]
     Indication: PRODUCT USED FOR UNKNOWN INDICATION
     Dosage: UNK
     Dates: end: 20110713
  8. ZOLPIDEM TARTRATE [Concomitant]
     Indication: PRODUCT USED FOR UNKNOWN INDICATION
  9. LEUSTATINE [Concomitant]
     Indication: PRODUCT USED FOR UNKNOWN INDICATION
     Dosage: UNK
     Dates: start: 20110725, end: 20110729

REACTIONS (1)
  - Toxic skin eruption [Recovered/Resolved]
